FAERS Safety Report 16428729 (Version 3)
Quarter: 2020Q2

REPORT INFORMATION
  Report Type: Spontaneous
  Country: AR (occurrence: AR)
  Receive Date: 20190613
  Receipt Date: 20200407
  Transmission Date: 20200713
  Serious: Yes (Other)
  Sender: FDA-Public Use
  Company Number: AR-BIOMARINAP-AR-2019-124116

PATIENT
  Age: 15 Year
  Sex: Male

DRUGS (1)
  1. BRINEURA [Suspect]
     Active Substance: CERLIPONASE ALFA
     Indication: NEURONAL CEROID LIPOFUSCINOSIS
     Dosage: UNK
     Route: 020
     Dates: start: 20180529

REACTIONS (9)
  - Disease progression [Unknown]
  - Hallucination [Unknown]
  - Myoclonic epilepsy [Unknown]
  - Motor dysfunction [Unknown]
  - Language disorder [Unknown]
  - Ataxia [Unknown]
  - Dystonia [Unknown]
  - Drug ineffective [Unknown]
  - Dysphagia [Unknown]
